FAERS Safety Report 12725673 (Version 1)
Quarter: 2016Q3

REPORT INFORMATION
  Report Type: Spontaneous
  Country: US (occurrence: US)
  Receive Date: 20160906
  Receipt Date: 20160906
  Transmission Date: 20161109
  Serious: Yes (Disabling)
  Sender: FDA-Public Use
  Company Number: None

PATIENT
  Age: 48 Year
  Sex: Female
  Weight: 72 kg

DRUGS (2)
  1. RANITIDINE. [Concomitant]
     Active Substance: RANITIDINE
  2. LAMOTRIGINE. [Suspect]
     Active Substance: LAMOTRIGINE
     Indication: EPILEPSY
     Route: 048

REACTIONS (4)
  - Muscular weakness [None]
  - Balance disorder [None]
  - Diplopia [None]
  - Motor dysfunction [None]

NARRATIVE: CASE EVENT DATE: 20160831
